FAERS Safety Report 24265644 (Version 2)
Quarter: 2024Q3

REPORT INFORMATION
  Report Type: Report from Study
  Country: CO (occurrence: CO)
  Receive Date: 20240829
  Receipt Date: 20240913
  Transmission Date: 20241016
  Serious: Yes (Other)
  Sender: ABBVIE
  Company Number: CO-ABBVIE-5897905

PATIENT
  Sex: Male
  Weight: 100 kg

DRUGS (2)
  1. SKYRIZI [Suspect]
     Active Substance: RISANKIZUMAB-RZAA
     Indication: Psoriasis
     Dosage: FORM STRENGTH: 150 MILLIGRAM
     Route: 058
     Dates: start: 20210929, end: 20240524
  2. SKYRIZI [Suspect]
     Active Substance: RISANKIZUMAB-RZAA
     Dosage: FORM STRENGTH: 150 MILLIGRAM
     Route: 058
     Dates: start: 20240906

REACTIONS (13)
  - Pyrexia [Recovering/Resolving]
  - COVID-19 [Recovered/Resolved]
  - Muscle spasms [Unknown]
  - Bone pain [Not Recovered/Not Resolved]
  - Chills [Recovering/Resolving]
  - Influenza like illness [Recovering/Resolving]
  - Nasal congestion [Recovering/Resolving]
  - Oropharyngeal pain [Recovering/Resolving]
  - Influenza [Recovered/Resolved]
  - Arthritis [Not Recovered/Not Resolved]
  - Myalgia [Not Recovered/Not Resolved]
  - Pain [Not Recovered/Not Resolved]
  - Arthralgia [Not Recovered/Not Resolved]

NARRATIVE: CASE EVENT DATE: 20210101
